FAERS Safety Report 7070849-8 (Version None)
Quarter: 2010Q4

REPORT INFORMATION
  Report Type: 
  Country: None (occurrence: None)
  Receive Date: 20101021
  Receipt Date: 20101006
  Transmission Date: 20110411
  Serious: Yes (Other)
  Sender: FDA-Public Use
  Company Number: 019953

PATIENT
  Age: 28 Year
  Sex: Female

DRUGS (3)
  1. KEPPRA [Suspect]
     Dosage: (300 MG ORAL)
     Route: 048
     Dates: start: 20100320
  2. LAMOTRIGINE [Concomitant]
  3. HORMONAL CONTRACEPTIVES FOR SYSTEMIC USE [Concomitant]

REACTIONS (2)
  - MATERNAL DRUGS AFFECTING FOETUS [None]
  - PREMATURE LABOUR [None]
